FAERS Safety Report 25910239 (Version 1)
Quarter: 2025Q4

REPORT INFORMATION
  Report Type: Spontaneous
  Country: US (occurrence: US)
  Receive Date: 20251012
  Receipt Date: 20251012
  Transmission Date: 20260119
  Serious: No
  Sender: JOHNSON AND JOHNSON
  Company Number: US-VIIV HEALTHCARE-US2025AMR127504

PATIENT
  Age: 63 Year
  Sex: Male

DRUGS (2)
  1. CABENUVA [Suspect]
     Active Substance: CABOTEGRAVIR\RILPIVIRINE
     Indication: Product used for unknown indication
     Dosage: UNK, Q2M
     Route: 030
     Dates: start: 2024
  2. CABENUVA [Suspect]
     Active Substance: CABOTEGRAVIR\RILPIVIRINE
     Indication: Product used for unknown indication
     Dosage: UNK, Q2M
     Route: 030
     Dates: start: 2024

REACTIONS (3)
  - Rash [Recovering/Resolving]
  - Migraine [Unknown]
  - Vision blurred [Unknown]

NARRATIVE: CASE EVENT DATE: 20250501
